FAERS Safety Report 25617278 (Version 1)
Quarter: 2025Q3

REPORT INFORMATION
  Report Type: Spontaneous
  Country: US (occurrence: US)
  Receive Date: 20250729
  Receipt Date: 20250729
  Transmission Date: 20251020
  Serious: No
  Sender: GLENMARK
  Company Number: US-GLENMARK PHARMACEUTICALS-2025GMK098137

PATIENT

DRUGS (1)
  1. OLOPATADINE HYDROCHLORIDE OPHTHALMIC SOLUTION 0.1 % [Suspect]
     Active Substance: OLOPATADINE HYDROCHLORIDE
     Indication: Hypersensitivity
     Dosage: UNK, OD
     Route: 047

REACTIONS (2)
  - Product storage error [Unknown]
  - Product use in unapproved indication [Unknown]
